FAERS Safety Report 11027604 (Version 1)
Quarter: 2015Q2

REPORT INFORMATION
  Report Type: Spontaneous
  Country: GR (occurrence: GR)
  Receive Date: 20150414
  Receipt Date: 20150414
  Transmission Date: 20150821
  Serious: Yes (Life-Threatening, Hospitalization)
  Sender: FDA-Public Use
  Company Number: GR-MYLANLABS-2015M1012243

PATIENT

DRUGS (2)
  1. FENTANYL. [Suspect]
     Active Substance: FENTANYL
     Indication: NEURALGIA
     Route: 062
  2. TRAMADOL [Suspect]
     Active Substance: TRAMADOL
     Indication: NEURALGIA
     Dosage: 50MG TWICE TO THRICE DAILY
     Route: 065

REACTIONS (3)
  - Toxicity to various agents [Recovering/Resolving]
  - Respiratory depression [Recovering/Resolving]
  - Respiratory acidosis [Recovering/Resolving]
